FAERS Safety Report 15712341 (Version 1)
Quarter: 2018Q4

REPORT INFORMATION
  Report Type: Report from Study
  Country: FR (occurrence: FR)
  Receive Date: 20181212
  Receipt Date: 20181212
  Transmission Date: 20190205
  Serious: Yes (Other)
  Sender: FDA-Public Use
  Company Number: FR-ROCHE-2227057

PATIENT

DRUGS (4)
  1. AFATINIB [Suspect]
     Active Substance: AFATINIB
     Indication: HER-2 POSITIVE BREAST CANCER
     Route: 048
  2. AFATINIB [Suspect]
     Active Substance: AFATINIB
     Indication: HER-2 POSITIVE GASTRIC CANCER
     Route: 048
  3. TRASTUZUMAB. [Suspect]
     Active Substance: TRASTUZUMAB
     Indication: HER-2 POSITIVE GASTRIC CANCER
     Dosage: LOADING DOSE
     Route: 042
  4. TRASTUZUMAB. [Suspect]
     Active Substance: TRASTUZUMAB
     Indication: HER-2 POSITIVE BREAST CANCER
     Dosage: MAINTAINENCE DOSE
     Route: 042

REACTIONS (5)
  - Hypokalaemia [Unknown]
  - Cardiotoxicity [Unknown]
  - Ejection fraction decreased [Unknown]
  - Diarrhoea [Unknown]
  - Tumour lysis syndrome [Unknown]
